FAERS Safety Report 24221254 (Version 5)
Quarter: 2024Q4

REPORT INFORMATION
  Report Type: Spontaneous
  Country: US (occurrence: US)
  Receive Date: 20240819
  Receipt Date: 20241108
  Transmission Date: 20250115
  Serious: No
  Sender: BRISTOL-MYERS SQUIBB COMPANY
  Company Number: US-BRISTOL-MYERS SQUIBB COMPANY-2024-129792

PATIENT
  Age: 73 Year
  Sex: Female

DRUGS (2)
  1. LENALIDOMIDE [Suspect]
     Active Substance: LENALIDOMIDE
     Indication: Plasma cell myeloma
     Route: 048
  2. LENALIDOMIDE [Suspect]
     Active Substance: LENALIDOMIDE
     Route: 048

REACTIONS (11)
  - COVID-19 [Recovered/Resolved]
  - Chapped lips [Recovered/Resolved]
  - Lip erythema [Recovered/Resolved]
  - Cheilitis [Recovered/Resolved]
  - Cough [Recovering/Resolving]
  - Dysphonia [Recovered/Resolved]
  - Stomatitis [Unknown]
  - Treatment noncompliance [Unknown]
  - Malaise [Unknown]
  - Rash [Recovering/Resolving]
  - Lip dry [Recovering/Resolving]
